FAERS Safety Report 9243661 (Version 2)
Quarter: 2014Q1

REPORT INFORMATION
  Report Type: Spontaneous
  Country: BR (occurrence: BR)
  Receive Date: 20130422
  Receipt Date: 20140306
  Transmission Date: 20141002
  Serious: Yes (Other)
  Sender: FDA-Public Use
  Company Number: BR-AMGEN-BRASP2012047017

PATIENT
  Age: 66 Year
  Sex: Female
  Weight: 45 kg

DRUGS (11)
  1. ENBREL [Suspect]
     Indication: RHEUMATOID ARTHRITIS
     Dosage: 50 MG, QWK
     Route: 058
     Dates: start: 200809
  2. ENBREL [Suspect]
     Dosage: UNK
     Route: 065
  3. ENBREL [Suspect]
     Dosage: UNK
     Route: 065
  4. OMEPRAZOLE [Concomitant]
     Indication: GASTROINTESTINAL DISORDER
     Dosage: STRENGTH 20MG, UNK
  5. SIMVASTATIN [Concomitant]
     Indication: BLOOD CHOLESTEROL ABNORMAL
     Dosage: STRENGTH 20MG, UNK
  6. PREDNISONE [Concomitant]
     Indication: PAIN
     Dosage: STRENGTH 5MG, UNK
  7. METFORMIN [Concomitant]
     Indication: DIABETES MELLITUS
     Dosage: STRENGTH 80, UNIT NOT PROVIDED, UNK
  8. CALCIUM CARBONATE [Concomitant]
     Dosage: STRENGTH 1250, UNIT NOT PROVIDED, UNK
  9. ALENDRONATE SODIUM [Concomitant]
     Dosage: STRENGTH 70MG, UNK
  10. FOLIC ACID [Concomitant]
     Dosage: STRENGTH 5MG, UNK
  11. METHOTREXATE [Concomitant]
     Indication: ARTHRITIS
     Dosage: STRENGTH 2.5MG, UNK

REACTIONS (8)
  - Bursitis [Unknown]
  - Diabetes mellitus [Unknown]
  - Pain [Unknown]
  - Osteoporosis [Unknown]
  - Erythema [Not Recovered/Not Resolved]
  - Pruritus [Not Recovered/Not Resolved]
  - Wrong technique in drug usage process [Not Recovered/Not Resolved]
  - Injection site pain [Not Recovered/Not Resolved]
